FAERS Safety Report 16962536 (Version 2)
Quarter: 2019Q4

REPORT INFORMATION
  Report Type: Spontaneous
  Country: JP (occurrence: JP)
  Receive Date: 20191025
  Receipt Date: 20191122
  Transmission Date: 20200122
  Serious: Yes (Death)
  Sender: FDA-Public Use
  Company Number: JP-JNJFOC-20191026479

PATIENT
  Age: 5 Decade
  Sex: Female
  Weight: 84.5 kg

DRUGS (10)
  1. ALCOHOL. [Interacting]
     Active Substance: ALCOHOL
     Indication: PRODUCT USED FOR UNKNOWN INDICATION
     Route: 065
  2. LEVOMEPROMAZINE                    /00038602/ [Interacting]
     Active Substance: LEVOMEPROMAZINE
     Indication: PRODUCT USED FOR UNKNOWN INDICATION
     Dosage: UNKNOWN
     Route: 048
  3. PROMETHAZINE HYDROCHLORIDE. [Interacting]
     Active Substance: PROMETHAZINE HYDROCHLORIDE
     Indication: PRODUCT USED FOR UNKNOWN INDICATION
     Dosage: UNKNOWN
     Route: 065
  4. ACETAMINOPHEN. [Concomitant]
     Active Substance: ACETAMINOPHEN
     Indication: PRODUCT USED FOR UNKNOWN INDICATION
     Dosage: UNKNOWN
     Route: 065
  5. DEXTROMETHORPHAN HYDROBROMIDE. [Interacting]
     Active Substance: DEXTROMETHORPHAN HYDROBROMIDE
     Indication: PRODUCT USED FOR UNKNOWN INDICATION
     Dosage: UNKNOWN
     Route: 065
  6. CLOMIPRAMINE HYDROCHLORIDE. [Interacting]
     Active Substance: CLOMIPRAMINE HYDROCHLORIDE
     Indication: PRODUCT USED FOR UNKNOWN INDICATION
     Dosage: UNKNOWN
     Route: 065
  7. RISPERDAL [Suspect]
     Active Substance: RISPERIDONE
     Indication: PRODUCT USED FOR UNKNOWN INDICATION
     Dosage: UNKNOWN
     Route: 048
  8. ESTAZOLAM. [Interacting]
     Active Substance: ESTAZOLAM
     Indication: PRODUCT USED FOR UNKNOWN INDICATION
     Dosage: UNKNOWN
     Route: 048
  9. FLUNITRAZEPAM [Concomitant]
     Active Substance: FLUNITRAZEPAM
     Dosage: UNKNOWN
     Route: 065
  10. RISPERIDONE. [Interacting]
     Active Substance: RISPERIDONE
     Indication: PRODUCT USED FOR UNKNOWN INDICATION
     Dosage: UNKNOWN
     Route: 048

REACTIONS (2)
  - Drug interaction [Fatal]
  - Toxicity to various agents [Fatal]
